FAERS Safety Report 4807552-8 (Version None)
Quarter: 2005Q4

REPORT INFORMATION
  Report Type: 
  Country: None (occurrence: None)
  Receive Date: 20051024
  Receipt Date: 20051012
  Transmission Date: 20060501
  Serious: Yes (Hospitalization)
  Sender: FDA-Public Use
  Company Number: US-ROCHE-421110

PATIENT
  Age: 43 Year
  Sex: Female

DRUGS (5)
  1. TAMIFLU [Suspect]
     Indication: DRUG USE FOR UNKNOWN INDICATION
     Route: 048
     Dates: start: 20050312
  2. CELTECT [Suspect]
     Indication: RHINITIS ALLERGIC
     Route: 048
     Dates: start: 20050309, end: 20050310
  3. ZYRTEC [Suspect]
     Indication: RHINITIS ALLERGIC
     Route: 048
     Dates: start: 20050226
  4. RAMATROBAN [Suspect]
     Indication: RHINITIS ALLERGIC
     Route: 048
     Dates: start: 20050310
  5. FLOMOX [Suspect]
     Indication: SUBCUTANEOUS ABSCESS
     Route: 048
     Dates: start: 20050311

REACTIONS (2)
  - HEPATOCELLULAR DAMAGE [None]
  - JAUNDICE [None]
